FAERS Safety Report 20114062 (Version 1)
Quarter: 2021Q4

REPORT INFORMATION
  Report Type: Spontaneous
  Country: FR (occurrence: FR)
  Receive Date: 20211125
  Receipt Date: 20211125
  Transmission Date: 20220303
  Serious: Yes (Hospitalization)
  Sender: FDA-Public Use
  Company Number: FR-TEVA-2021-FR-1979942

PATIENT
  Age: 60 Year
  Sex: Female

DRUGS (1)
  1. OXALIPLATIN [Suspect]
     Active Substance: OXALIPLATIN
     Indication: Metastases to peritoneum
     Dosage: AEROSOL
     Route: 033
     Dates: start: 2020, end: 2020

REACTIONS (2)
  - Acute respiratory distress syndrome [Recovered/Resolved]
  - Chemical peritonitis [Recovered/Resolved]

NARRATIVE: CASE EVENT DATE: 20200101
